FAERS Safety Report 13952024 (Version 2)
Quarter: 2017Q3

REPORT INFORMATION
  Report Type: Spontaneous
  Country: GB (occurrence: GB)
  Receive Date: 20170910
  Receipt Date: 20170911
  Transmission Date: 20171128
  Serious: Yes (Other)
  Sender: FDA-Public Use
  Company Number: GB-MYLANLABS-2017M1055190

PATIENT
  Age: 81 Year
  Sex: Female
  Weight: 49 kg

DRUGS (16)
  1. ALENDRONIC ACID [Concomitant]
     Active Substance: ALENDRONIC ACID
     Indication: BONE DISORDER
     Dosage: TO PROTECT BONES.
     Dates: start: 20160309
  2. BUSCOPAN [Concomitant]
     Active Substance: BUTYLSCOPOLAMINE BROMIDE
     Indication: ABDOMINAL PAIN
     Dosage: 4 TIMES/DAY.
     Dates: start: 20170509
  3. MEBEVERINE HYDROCHLORIDE [Concomitant]
     Active Substance: MEBEVERINE HYDROCHLORIDE
     Dosage: 3 TIMES/DAY (AS PER THE RAPID ASSESSMENT CLINIC FOR OLDER PEOPLE).
     Dates: start: 20160414
  4. TRIMETHOPRIM. [Concomitant]
     Active Substance: TRIMETHOPRIM
     Dates: start: 20170614, end: 20170617
  5. CO-DYDRAMOL [Concomitant]
     Active Substance: ACETAMINOPHEN\DIHYDROCODEINE
     Indication: PAIN
     Dosage: EVERY 6 HOURS, MAXIMUM 8 PER DAY.
     Dates: start: 20160309
  6. PREDNISOLONE. [Concomitant]
     Active Substance: PREDNISOLONE
     Dosage: 2MG OR 1MG DAILY DEPENDING ON CHART FROM DOCTOR.
     Dates: start: 20160309, end: 20170619
  7. AMOXICILLIN. [Concomitant]
     Active Substance: AMOXICILLIN
     Indication: URINARY TRACT INFECTION
     Dates: start: 20170619, end: 20170624
  8. PEPPERMINT OIL [Concomitant]
     Active Substance: PEPPERMINT OIL
     Dosage: ONE OR TWO TO BE TAKEN THREE TIMES A DAY.
     Dates: start: 20160309
  9. BUPRENORPHINE. [Suspect]
     Active Substance: BUPRENORPHINE
     Indication: PRODUCT USED FOR UNKNOWN INDICATION
     Dates: start: 20160425
  10. LOPERAMIDE [Concomitant]
     Active Substance: LOPERAMIDE
     Dosage: EVERY 4-8 HOURS.
     Dates: start: 20160309
  11. VAGIFEM [Concomitant]
     Active Substance: ESTRADIOL
     Dosage: INSERT ONE A NIGHT UNTIL DERMATOLOGY APPOINTMENT.
     Dates: start: 20170411
  12. ACCRETE D3 [Concomitant]
     Dates: start: 20160309
  13. CLOTRIMAZOLE. [Concomitant]
     Active Substance: CLOTRIMAZOLE
     Dosage: APPLY 2-3 TIMES PER DAY.
     Dates: start: 20170614, end: 20170714
  14. GABAPENTIN. [Concomitant]
     Active Substance: GABAPENTIN
     Dosage: INCREASING TO THREE TABLETS TO ...
     Dates: start: 20170731
  15. CLOBETASOL PROPIONATE. [Concomitant]
     Active Substance: CLOBETASOL PROPIONATE
     Dosage: APPLY 1-2 TIMES/DAY AS DIRECTED BY DERMATOLOGIST.
     Dates: start: 20170801
  16. OMEPRAZOLE. [Concomitant]
     Active Substance: OMEPRAZOLE
     Dates: start: 20160309

REACTIONS (1)
  - Dermatitis allergic [Recovering/Resolving]

NARRATIVE: CASE EVENT DATE: 20170816
